FAERS Safety Report 8479454-X (Version None)
Quarter: 2012Q2

REPORT INFORMATION
  Report Type: 
  Country: None (occurrence: None)
  Receive Date: 20120629
  Receipt Date: 20120620
  Transmission Date: 20120825
  Serious: Yes (Other)
  Sender: FDA-Public Use
  Company Number: US-ABBOTT-12P-163-0948273-00

PATIENT
  Sex: Female

DRUGS (2)
  1. HUMIRA [Suspect]
     Indication: PSORIASIS
     Dates: start: 20111101
  2. DIOVAN [Concomitant]
     Indication: BLOOD PRESSURE

REACTIONS (1)
  - LUNG NEOPLASM [None]
